FAERS Safety Report 8556729-7 (Version None)
Quarter: 2012Q3

REPORT INFORMATION
  Report Type: 
  Country: None (occurrence: None)
  Receive Date: 20120801
  Receipt Date: 20120726
  Transmission Date: 20120928
  Serious: Yes (Other)
  Sender: FDA-Public Use
  Company Number: IR-PFIZER INC-2012182705

PATIENT
  Age: 17 Year
  Sex: Male

DRUGS (4)
  1. TETRACAINE [Suspect]
     Route: 061
  2. ATROPINE SULFATE [Suspect]
     Route: 061
  3. PHENYLEPHRINE HCL [Suspect]
     Route: 061
  4. TROPICAMIDE [Suspect]
     Route: 061

REACTIONS (2)
  - LOSS OF CONSCIOUSNESS [None]
  - HYPERTENSION [None]
